FAERS Safety Report 23467572 (Version 1)
Quarter: 2024Q1

REPORT INFORMATION
  Report Type: Spontaneous
  Country: IN (occurrence: IN)
  Receive Date: 20240201
  Receipt Date: 20240201
  Transmission Date: 20240409
  Serious: Yes (Hospitalization, Other)
  Sender: FDA-Public Use
  Company Number: IN-SUN PHARMACEUTICAL INDUSTRIES LTD-2024R1-429327

PATIENT
  Age: 29 Year
  Sex: Female

DRUGS (4)
  1. CETIRIZINE [Suspect]
     Active Substance: CETIRIZINE HYDROCHLORIDE
     Indication: Polymorphic eruption of pregnancy
     Dosage: 10 MILLIGRAM, DAILY
     Route: 048
  2. INSULIN NOS [Suspect]
     Active Substance: INSULIN NOS
     Indication: Diabetes mellitus
     Dosage: UNK
     Route: 065
  3. METHYLDOPA [Suspect]
     Active Substance: METHYLDOPA
     Indication: Pre-eclampsia
     Dosage: UNK
     Route: 065
  4. LEVOTHYROXINE [Suspect]
     Active Substance: LEVOTHYROXINE\LEVOTHYROXINE SODIUM
     Indication: Hypothyroidism
     Dosage: 200 MICROGRAM, DAILY
     Route: 065

REACTIONS (6)
  - Polymorphic eruption of pregnancy [Unknown]
  - Premature delivery [Unknown]
  - Exposure during pregnancy [Unknown]
  - Hypothyroidism [Unknown]
  - Pre-eclampsia [Unknown]
  - Anaemia [Unknown]
